FAERS Safety Report 21175401 (Version 1)
Quarter: 2022Q3

REPORT INFORMATION
  Report Type: Other
  Country: JP (occurrence: JP)
  Receive Date: 20220805
  Receipt Date: 20220805
  Transmission Date: 20221027
  Serious: Yes (Hospitalization)
  Sender: FDA-Public Use
  Company Number: JP-CHUGAI-2022029279

PATIENT
  Age: 60 Year
  Sex: Female
  Weight: 43 kg

DRUGS (4)
  1. SATRALIZUMAB [Suspect]
     Active Substance: SATRALIZUMAB
     Indication: Neuromyelitis optica spectrum disorder
     Dosage: 120 MILLIGRAM, ONCE/2WEEKS
     Route: 058
     Dates: start: 20210420, end: 20210518
  2. SATRALIZUMAB [Suspect]
     Active Substance: SATRALIZUMAB
     Dosage: 120 MILLIGRAM, ONCE/4WEEKS
     Route: 058
     Dates: start: 20210615, end: 20211102
  3. PREDONINE [Concomitant]
     Active Substance: PREDNISOLONE
     Indication: Neuromyelitis optica spectrum disorder
     Dosage: 30MG/DAY
     Route: 048
     Dates: start: 20210420, end: 20211020
  4. TACROLIMUS [Concomitant]
     Active Substance: TACROLIMUS
     Indication: Neuromyelitis optica spectrum disorder
     Dosage: UNK
     Route: 065
     Dates: start: 20210420, end: 20211020

REACTIONS (3)
  - Myelodysplastic syndrome [Not Recovered/Not Resolved]
  - Anaemia [Not Recovered/Not Resolved]
  - Platelet count decreased [Not Recovered/Not Resolved]

NARRATIVE: CASE EVENT DATE: 20211001
